FAERS Safety Report 20507268 (Version 1)
Quarter: 2022Q1

REPORT INFORMATION
  Report Type: Spontaneous
  Country: US (occurrence: US)
  Receive Date: 20220223
  Receipt Date: 20220223
  Transmission Date: 20220423
  Serious: No
  Sender: FDA-Public Use
  Company Number: US-BRACCO-2021US02309

PATIENT
  Age: 60 Year
  Sex: Female

DRUGS (1)
  1. ISOVUE 370 [Suspect]
     Active Substance: IOPAMIDOL
     Indication: Diagnostic procedure
     Dosage: 100 ML
     Dates: start: 20210531, end: 20210531

REACTIONS (7)
  - Haematuria [Unknown]
  - Burning sensation [Unknown]
  - Hypoaesthesia oral [Unknown]
  - Body temperature increased [Unknown]
  - Pain [Unknown]
  - Dyspnoea [Unknown]
  - Abdominal pain lower [Unknown]

NARRATIVE: CASE EVENT DATE: 20210531
